FAERS Safety Report 7929493-X (Version None)
Quarter: 2011Q4

REPORT INFORMATION
  Report Type: 
  Country: None (occurrence: None)
  Receive Date: 20111121
  Receipt Date: 20111116
  Transmission Date: 20120403
  Serious: No
  Sender: FDA-Public Use
  Company Number: US-BIOGENIDEC-2011BI044008

PATIENT
  Sex: Female

DRUGS (5)
  1. AVONEX [Suspect]
     Route: 030
     Dates: end: 20110101
  2. IBUPROFEN [Concomitant]
     Indication: PREMEDICATION
     Route: 048
  3. PREDNISONE TAB [Concomitant]
     Indication: PREMEDICATION
     Route: 048
  4. AVONEX [Suspect]
     Route: 030
     Dates: start: 20110101
  5. AVONEX [Suspect]
     Indication: MULTIPLE SCLEROSIS
     Route: 030
     Dates: start: 19970607

REACTIONS (7)
  - FEELING HOT [None]
  - MUSCLE SPASMS [None]
  - HEADACHE [None]
  - PAIN [None]
  - INFLUENZA LIKE ILLNESS [None]
  - DIARRHOEA [None]
  - CHILLS [None]
